FAERS Safety Report 8059916-X (Version None)
Quarter: 2012Q1

REPORT INFORMATION
  Report Type: 
  Country: None (occurrence: None)
  Receive Date: 20120120
  Receipt Date: 20120110
  Transmission Date: 20120608
  Serious: Yes (Other)
  Sender: FDA-Public Use
  Company Number: US-BAYER-2011-108776

PATIENT
  Age: 29 Year
  Sex: Female
  Weight: 54.422 kg

DRUGS (5)
  1. YASMIN [Suspect]
     Indication: CONTRACEPTION
     Dosage: UNK
     Route: 048
     Dates: start: 20050101, end: 20070101
  2. YASMIN [Suspect]
     Indication: OVARIAN CYST
  3. METRONIDAZOLE [Concomitant]
     Indication: ROSACEA
     Dosage: UNK
     Dates: start: 19980101
  4. ACIPHEX [Concomitant]
     Dosage: 20 MG, QD
  5. IBUPROFEN (ADVIL) [Concomitant]
     Dosage: UNK
     Dates: start: 19960101

REACTIONS (4)
  - CHOLECYSTITIS CHRONIC [None]
  - CHOLECYSTECTOMY [None]
  - BILIARY DYSKINESIA [None]
  - INJURY [None]
